FAERS Safety Report 20299244 (Version 2)
Quarter: 2022Q1

REPORT INFORMATION
  Report Type: Spontaneous
  Country: IN (occurrence: IN)
  Receive Date: 20220105
  Receipt Date: 20220111
  Transmission Date: 20220423
  Serious: Yes (Hospitalization, Other)
  Sender: FDA-Public Use
  Company Number: IN-MLMSERVICE-20211216-3273227-1

PATIENT
  Age: 43 Year
  Sex: Female

DRUGS (2)
  1. VANCOMYCIN HYDROCHLORIDE [Suspect]
     Active Substance: VANCOMYCIN HYDROCHLORIDE
     Indication: Endocarditis
     Dosage: UNK
     Route: 042
  2. CEFTRIAXONE [Concomitant]
     Active Substance: CEFTRIAXONE
     Indication: Endocarditis
     Dosage: UNK
     Route: 042

REACTIONS (4)
  - Pyrexia [Recovered/Resolved]
  - Leukopenia [Recovered/Resolved]
  - Neutropenia [Recovered/Resolved]
  - Transaminases increased [Unknown]
